FAERS Safety Report 15454659 (Version 2)
Quarter: 2018Q4

REPORT INFORMATION
  Report Type: Spontaneous
  Country: US (occurrence: US)
  Receive Date: 20181002
  Receipt Date: 20181030
  Transmission Date: 20190204
  Serious: No
  Sender: FDA-Public Use
  Company Number: US-AMGEN-USASP2018135320

PATIENT
  Age: 62 Year
  Sex: Female

DRUGS (5)
  1. ENBREL [Suspect]
     Active Substance: ETANERCEPT
     Dosage: 50 MG, QWK
     Route: 065
  2. CELEBREX [Concomitant]
     Active Substance: CELECOXIB
     Dosage: BID
  3. LOSARTAN. [Concomitant]
     Active Substance: LOSARTAN
     Dosage: QD
  4. ENBREL [Suspect]
     Active Substance: ETANERCEPT
     Indication: RHEUMATOID ARTHRITIS
     Dosage: 50 MG, QWK
     Route: 065
     Dates: start: 2016
  5. DOXYCYCLINE. [Concomitant]
     Active Substance: DOXYCYCLINE
     Indication: ROSACEA
     Dosage: 40 MG, QD

REACTIONS (6)
  - Back pain [Not Recovered/Not Resolved]
  - Mouth ulceration [Unknown]
  - Eye irritation [Unknown]
  - Vision blurred [Not Recovered/Not Resolved]
  - Fungal infection [Unknown]
  - Skin infection [Not Recovered/Not Resolved]
